FAERS Safety Report 4309675-9 (Version None)
Quarter: 2004Q1

REPORT INFORMATION
  Report Type: 
  Country: None (occurrence: None)
  Receive Date: 20040302
  Receipt Date: 20040220
  Transmission Date: 20041129
  Serious: Yes (Other)
  Sender: FDA-Public Use
  Company Number: US-JNJFOC-20040204905

PATIENT
  Age: 60 Year
  Sex: Female
  Weight: 51.2565 kg

DRUGS (11)
  1. INFLIXIMAB (INFLIXIMAB, RECOMBINANT) LYOPHILIZED POWDER [Suspect]
     Indication: RHEUMATOID ARTHRITIS
     Dosage: INTRAVENOUS
     Route: 042
     Dates: start: 20010206
  2. CELEBREX [Concomitant]
  3. METHOTREXATE [Concomitant]
  4. DYAZIDE [Concomitant]
  5. FOLIC ACID [Concomitant]
  6. FOSAMAX [Concomitant]
  7. TOPROL (METOPROLOL SUCCINATE) [Concomitant]
  8. PREDNISONE [Concomitant]
  9. PREMARIN [Concomitant]
  10. CITRACAL (ESTROGENS CONJUGATED) [Concomitant]
  11. MELATONIN (MELATONIN) [Concomitant]

REACTIONS (1)
  - BASAL CELL CARCINOMA [None]
